FAERS Safety Report 15505864 (Version 2)
Quarter: 2018Q4

REPORT INFORMATION
  Report Type: Spontaneous
  Country: US (occurrence: US)
  Receive Date: 20181016
  Receipt Date: 20181130
  Transmission Date: 20190205
  Serious: No
  Sender: FDA-Public Use
  Company Number: US-PFIZER INC-2018411077

PATIENT
  Age: 61 Year
  Sex: Male

DRUGS (1)
  1. LYRICA [Suspect]
     Active Substance: PREGABALIN
     Indication: DIABETIC NEUROPATHY
     Dosage: 600 MG, DAILY (TAKE ONE CAPSULE IN AM AND TWO AT EVENING)

REACTIONS (1)
  - Prescribed overdose [Unknown]
